FAERS Safety Report 7774923-X (Version None)
Quarter: 2011Q3

REPORT INFORMATION
  Report Type: 
  Country: None (occurrence: None)
  Receive Date: 20110923
  Receipt Date: 20110921
  Transmission Date: 20111222
  Serious: Yes (Hospitalization)
  Sender: FDA-Public Use
  Company Number: US-B.I. PHARMACEUTICALS,INC./RIDGEFIELD-2011-BP-17819BP

PATIENT
  Sex: Male
  Weight: 79.5 kg

DRUGS (3)
  1. CORGARD [Concomitant]
     Indication: HYPERTENSION
     Dosage: 40 MG
     Route: 048
  2. DIGOXIN [Concomitant]
     Indication: ATRIAL FIBRILLATION
     Dosage: 0.25 MG
     Route: 048
  3. PRADAXA [Suspect]
     Indication: ATRIAL FIBRILLATION
     Dosage: 300 MG
     Route: 048
     Dates: start: 20110523, end: 20110526

REACTIONS (1)
  - RECTAL HAEMORRHAGE [None]
